FAERS Safety Report 4320181-8 (Version None)
Quarter: 2004Q1

REPORT INFORMATION
  Report Type: 
  Country: None (occurrence: None)
  Receive Date: 20040317
  Receipt Date: 20040310
  Transmission Date: 20041129
  Serious: Yes (Hospitalization)
  Sender: FDA-Public Use
  Company Number: US-JNJFOC-20040300219

PATIENT
  Sex: Female

DRUGS (2)
  1. DITROPAN XL [Suspect]
     Indication: DRUG USE FOR UNKNOWN INDICATION
     Dosage: SEE IMAGE
     Route: 048
     Dates: start: 20040201
  2. DITROPAN XL [Suspect]
     Indication: DRUG USE FOR UNKNOWN INDICATION
     Dosage: SEE IMAGE
     Route: 048
     Dates: start: 20040201

REACTIONS (1)
  - URINARY INCONTINENCE [None]
